FAERS Safety Report 4338726-0 (Version None)
Quarter: 2004Q2

REPORT INFORMATION
  Report Type: 
  Country: None (occurrence: None)
  Receive Date: 20040414
  Receipt Date: 20040405
  Transmission Date: 20050107
  Serious: Yes (Hospitalization)
  Sender: FDA-Public Use
  Company Number: FR-ROCHE-363977

PATIENT
  Age: 6 Year
  Sex: Male
  Weight: 31 kg

DRUGS (1)
  1. VALIUM [Suspect]
     Indication: PREMEDICATION
     Route: 048

REACTIONS (4)
  - ACCIDENTAL OVERDOSE [None]
  - DIPLOPIA [None]
  - GAIT DISTURBANCE [None]
  - OVERDOSE [None]
